FAERS Safety Report 4904441-5 (Version None)
Quarter: 2006Q1

REPORT INFORMATION
  Report Type: 
  Country: None (occurrence: None)
  Receive Date: 20060208
  Receipt Date: 20050901
  Transmission Date: 20060701
  Serious: No
  Sender: FDA-Public Use
  Company Number: US-GLAXOSMITHKLINE-A0573150A

PATIENT
  Age: 60 Year
  Sex: Male

DRUGS (1)
  1. PAROXETINE HCL [Suspect]
     Dosage: 20MG IN THE MORNING
     Route: 048
     Dates: start: 20050825

REACTIONS (2)
  - ANOREXIA [None]
  - SOMNOLENCE [None]
